FAERS Safety Report 6776697-8 (Version None)
Quarter: 2010Q2

REPORT INFORMATION
  Report Type: 
  Country: None (occurrence: None)
  Receive Date: 20100617
  Receipt Date: 20100617
  Transmission Date: 20101027
  Serious: Yes (Hospitalization)
  Sender: FDA-Public Use
  Company Number: None

PATIENT
  Sex: Female
  Weight: 73 kg

DRUGS (6)
  1. CYCLOPHOSPHAMIDE [Suspect]
     Dosage: 2200 MG
  2. DOXORUBICIN HCL [Suspect]
     Dosage: 117.6 MG
  3. ETOPOSIDE [Suspect]
     Dosage: 587.6 MG
  4. PREDNISONE [Suspect]
     Dosage: 1000 MG
  5. RITUXIMAB (MOAB C2B8 ANTI CD20 CHIMERIC) [Suspect]
     Dosage: 640 MG
  6. VINCRISTINE SULFATE [Suspect]
     Dosage: 2.72 MG

REACTIONS (3)
  - CHRONIC OBSTRUCTIVE PULMONARY DISEASE [None]
  - CONDITION AGGRAVATED [None]
  - PNEUMONIA [None]
